FAERS Safety Report 5873004-X (Version None)
Quarter: 2008Q3

REPORT INFORMATION
  Report Type: 
  Country: None (occurrence: None)
  Receive Date: 20080905
  Receipt Date: 20080827
  Transmission Date: 20090109
  Serious: Yes (Hospitalization)
  Sender: FDA-Public Use
  Company Number: GB-PFIZER INC-2008072323

PATIENT
  Sex: Female
  Weight: 42 kg

DRUGS (10)
  1. SU-011,248 [Suspect]
     Indication: BREAST CANCER
     Route: 048
     Dates: start: 20080609, end: 20080804
  2. CAPECITABINE [Suspect]
     Indication: BREAST CANCER
     Route: 048
     Dates: start: 20080609, end: 20080804
  3. MORPHINE [Concomitant]
     Indication: ANALGESIA
  4. CYCLIZINE [Concomitant]
     Indication: ANTIEMETIC SUPPORTIVE CARE
  5. ZOPICLONE [Concomitant]
     Indication: SEDATION
     Dosage: DAILY DOSE:7.5MG-TEXT:AT NIGHT
  6. SENNA [Concomitant]
     Indication: LAXATIVE SUPPORTIVE CARE
     Dosage: TEXT:2 TABLETS
  7. LACTULOSE [Concomitant]
     Indication: LAXATIVE SUPPORTIVE CARE
  8. NYSTATIN [Concomitant]
     Indication: ANTIFUNGAL PROPHYLAXIS
  9. CORSODYL [Concomitant]
  10. DIFFLAM [Concomitant]

REACTIONS (7)
  - CONSTIPATION [None]
  - DYSPHAGIA [None]
  - DYSPNOEA [None]
  - NAUSEA [None]
  - ORAL PAIN [None]
  - VOMITING [None]
  - WEIGHT DECREASED [None]
